FAERS Safety Report 17714298 (Version 1)
Quarter: 2020Q2

REPORT INFORMATION
  Report Type: Spontaneous
  Country: US (occurrence: US)
  Receive Date: 20200427
  Receipt Date: 20200427
  Transmission Date: 20200714
  Serious: No
  Sender: FDA-Public Use
  Company Number: US-GALDERMA-US2020008723

PATIENT
  Sex: Female

DRUGS (12)
  1. PROACTIV MD ADAPALENE ACNE TREATMENT [Suspect]
     Active Substance: ADAPALENE
     Indication: SEBORRHOEA
  2. PROACTIV REDNESS RELIEF SERUM [Concomitant]
     Indication: SEBORRHOEA
  3. PROACTIV GREEN TEA MOISTURIZER [Concomitant]
     Active Substance: COSMETICS
     Indication: SEBORRHOEA
  4. PROACTIV MD DAILY OIL CONTROL SPF 30 [Suspect]
     Active Substance: AVOBENZONE\OCTISALATE\OCTOCRYLENE
     Indication: SEBORRHOEA
  5. PROACTIV REDNESS RELIEF SERUM [Concomitant]
     Indication: ACNE
     Route: 061
     Dates: start: 20190405, end: 201905
  6. PROACTIV DEEP CLEANSING WASH [Concomitant]
     Active Substance: SALICYLIC ACID
     Indication: ACNE
     Route: 061
     Dates: start: 20190405, end: 201905
  7. PROACTIV DEEP CLEANSING WASH [Concomitant]
     Active Substance: SALICYLIC ACID
     Indication: SEBORRHOEA
  8. PROACTIV MD DAILY OIL CONTROL SPF 30 [Suspect]
     Active Substance: AVOBENZONE\OCTISALATE\OCTOCRYLENE
     Indication: ACNE
     Route: 061
     Dates: start: 20190405, end: 201905
  9. PROACTIV MD DEEP CLEANSING FACE WASH [Concomitant]
     Active Substance: COSMETICS
     Indication: SEBORRHOEA
  10. PROACTIV GREEN TEA MOISTURIZER [Concomitant]
     Active Substance: COSMETICS
     Indication: ACNE
     Route: 061
     Dates: start: 20190405, end: 201905
  11. PROACTIV MD ADAPALENE ACNE TREATMENT [Suspect]
     Active Substance: ADAPALENE
     Indication: ACNE
     Dosage: 0.1%
     Route: 061
     Dates: start: 20190405, end: 201905
  12. PROACTIV MD DEEP CLEANSING FACE WASH [Concomitant]
     Active Substance: COSMETICS
     Indication: ACNE
     Route: 061
     Dates: start: 20190405, end: 201905

REACTIONS (2)
  - Dry skin [Recovered/Resolved]
  - Skin tightness [Recovered/Resolved]

NARRATIVE: CASE EVENT DATE: 201904
